FAERS Safety Report 8291063-4 (Version None)
Quarter: 2012Q2

REPORT INFORMATION
  Report Type: 
  Country: None (occurrence: None)
  Receive Date: 20120417
  Receipt Date: 20110510
  Transmission Date: 20120825
  Serious: No
  Sender: FDA-Public Use
  Company Number: US-ASTRAZENECA-2011SE28362

PATIENT
  Age: 61 Year
  Sex: Female

DRUGS (4)
  1. LIPITOR [Concomitant]
  2. NEXIUM [Suspect]
     Route: 048
  3. FISH OIL [Concomitant]
  4. CALCIUM CARBONATE [Concomitant]

REACTIONS (3)
  - SOMNOLENCE [None]
  - MUSCLE SPASMS [None]
  - RASH [None]
